FAERS Safety Report 16726779 (Version 1)
Quarter: 2019Q3

REPORT INFORMATION
  Report Type: Spontaneous
  Country: FI (occurrence: FI)
  Receive Date: 20190821
  Receipt Date: 20190821
  Transmission Date: 20191005
  Serious: Yes (Hospitalization)
  Sender: FDA-Public Use
  Company Number: FI-BAUSCH-BL-2019-022786

PATIENT
  Age: 69 Year
  Sex: Female

DRUGS (2)
  1. IMIQUIMOD 5 PERCENT CREAM [Suspect]
     Active Substance: IMIQUIMOD
     Indication: ACTINIC KERATOSIS
     Dosage: FOR THE FIRST TIME
     Route: 061
     Dates: start: 200908
  2. IMIQUIMOD 5 PERCENT CREAM [Suspect]
     Active Substance: IMIQUIMOD
     Route: 061
     Dates: start: 201001, end: 2010

REACTIONS (14)
  - Muscular weakness [Unknown]
  - Dehydration [Unknown]
  - Dizziness [Recovering/Resolving]
  - Scab [Recovering/Resolving]
  - Local reaction [Unknown]
  - Orthostatic hypotension [Not Recovered/Not Resolved]
  - Decreased appetite [Recovering/Resolving]
  - Weight decreased [Recovered/Resolved]
  - Wound secretion [Recovering/Resolving]
  - Hypotension [Not Recovered/Not Resolved]
  - Wound complication [Unknown]
  - Nausea [Unknown]
  - Application site swelling [Unknown]
  - Application site erythema [Unknown]

NARRATIVE: CASE EVENT DATE: 2009
